FAERS Safety Report 13406867 (Version 12)
Quarter: 2021Q2

REPORT INFORMATION
  Report Type: Spontaneous
  Country: CA (occurrence: CA)
  Receive Date: 20170405
  Receipt Date: 20210428
  Transmission Date: 20210716
  Serious: Yes (Hospitalization, Disabling, Other)
  Sender: FDA-Public Use
  Company Number: CA-PFIZER INC-2017142138

PATIENT
  Age: 69 Year
  Sex: Male

DRUGS (3)
  1. HYDROXYCHLOROQUINE [Suspect]
     Active Substance: HYDROXYCHLOROQUINE
     Indication: RHEUMATOID ARTHRITIS
     Dosage: 400 MG, 5 DAYS PER WEEK
     Route: 065
  2. XELJANZ [Suspect]
     Active Substance: TOFACITINIB CITRATE
     Indication: RHEUMATOID ARTHRITIS
     Dosage: 5 MG TWICE DAILY
     Route: 048
     Dates: start: 20170321, end: 202010
  3. METHOTREXATE SODIUM. [Suspect]
     Active Substance: METHOTREXATE SODIUM
     Indication: RHEUMATOID ARTHRITIS
     Dosage: 25 MG, WEEKLY
     Dates: start: 201611

REACTIONS (5)
  - Total lung capacity decreased [Unknown]
  - Deafness [Not Recovered/Not Resolved]
  - Skin lesion [Unknown]
  - Lung disorder [Unknown]
  - Lung neoplasm malignant [Unknown]
